FAERS Safety Report 8087623 (Version 6)
Quarter: 2013Q1

REPORT INFORMATION
  Report Type: Spontaneous
  Country: US (occurrence: None)
  Receive Date: 20110804
  Receipt Date: 20121212
  Transmission Date: 20140127
  Serious: Yes (Hospitalization, Other)
  Sender: FDA-Public Use
  Company Number: CIP11001874

PATIENT
  Age: 65 Year
  Sex: Female

DRUGS (7)
  1. ACTONEL [Suspect]
     Indication: OSTEOPOROSIS
     Route: 048
     Dates: start: 200303, end: 200503
  2. FOSAMAX [Suspect]
     Indication: OSTEOPOROSIS
     Route: 048
     Dates: start: 200503, end: 201004
  3. UNITHROID (LEVOTHYROXINE SODIUM) [Concomitant]
  4. ZOLOFT [Concomitant]
  5. ASPIRIN [Concomitant]
  6. POTASSIUM CHLORIDE [Concomitant]
  7. DESMOPRESSIN ACETATE [Concomitant]

REACTIONS (14)
  - Femur fracture [None]
  - Fall [None]
  - Stress fracture [None]
  - Pain in extremity [None]
  - Pain [None]
  - Low turnover osteopathy [None]
  - Toxicity to various agents [None]
  - Skeletal injury [None]
  - No therapeutic response [None]
  - Oesophagitis [None]
  - Drug intolerance [None]
  - Breast cancer [None]
  - Pain in jaw [None]
  - Osteopenia [None]
